FAERS Safety Report 8167934 (Version 2)
Quarter: 2013Q3

REPORT INFORMATION
  Report Type: Spontaneous
  Country: JP (occurrence: JP)
  Receive Date: 20111004
  Receipt Date: 20130711
  Transmission Date: 20140515
  Serious: Yes (Other)
  Sender: FDA-Public Use
  Company Number: PHHY2011JP75837

PATIENT
  Age: 51 Year
  Sex: Male
  Weight: 58 kg

DRUGS (5)
  1. AFINITOR [Suspect]
     Indication: METASTATIC RENAL CELL CARCINOMA
     Dosage: 10 MG,DAILY
     Route: 048
     Dates: start: 20110610, end: 20110713
  2. AFINITOR [Suspect]
     Dosage: 10 MG DAILY
     Route: 048
     Dates: start: 20110722, end: 20110808
  3. AFINITOR [Suspect]
     Dosage: 5 MG, DAILY
     Route: 048
     Dates: start: 20110809, end: 20110810
  4. MIGLITOL [Concomitant]
     Indication: DIABETES MELLITUS
     Dosage: 150 MG
     Route: 048
  5. AMARYL [Concomitant]
     Indication: DIABETES MELLITUS
     Dosage: 6 MG
     Route: 048
     Dates: start: 20110722, end: 20110902

REACTIONS (4)
  - Hyperglycaemia [Recovering/Resolving]
  - Anaemia [Not Recovered/Not Resolved]
  - Gamma-glutamyltransferase increased [Not Recovered/Not Resolved]
  - Blood alkaline phosphatase increased [Not Recovered/Not Resolved]
